FAERS Safety Report 23369624 (Version 1)
Quarter: 2024Q1

REPORT INFORMATION
  Report Type: Other
  Country: None (occurrence: DE)
  Receive Date: 20240105
  Receipt Date: 20240105
  Transmission Date: 20240409
  Serious: Yes (Death)
  Sender: FDA-Public Use
  Company Number: DE-B.Braun Medical Inc.-2150169

PATIENT
  Age: 35 Year
  Sex: Female

DRUGS (1)
  1. HEPARIN SODIUM IN DEXTROSE [Suspect]
     Active Substance: HEPARIN SODIUM
     Indication: Cerebral venous sinus thrombosis

REACTIONS (2)
  - Cerebral haemorrhage [None]
  - Drug ineffective [None]
